FAERS Safety Report 9708720 (Version 2)
Quarter: 2014Q2

REPORT INFORMATION
  Report Type: Spontaneous
  Country: US (occurrence: US)
  Receive Date: 20131125
  Receipt Date: 20140414
  Transmission Date: 20141212
  Serious: Yes (Death, Hospitalization)
  Sender: FDA-Public Use
  Company Number: US-GLAXOSMITHKLINE-A1051037A

PATIENT
  Age: 67 Year
  Sex: Female

DRUGS (2)
  1. VOTRIENT [Suspect]
     Indication: RENAL CANCER
     Route: 065
     Dates: start: 2013
  2. CONCURRENT MEDICATIONS [Concomitant]

REACTIONS (3)
  - Renal cancer [Fatal]
  - Malignant neoplasm progression [Fatal]
  - Drug ineffective [Unknown]
